FAERS Safety Report 8127347-X (Version None)
Quarter: 2012Q1

REPORT INFORMATION
  Report Type: 
  Country: None (occurrence: None)
  Receive Date: 20120210
  Receipt Date: 20120130
  Transmission Date: 20120608
  Serious: Yes (Death)
  Sender: FDA-Public Use
  Company Number: ES-BRISTOL-MYERS SQUIBB COMPANY-16373995

PATIENT
  Age: 44 Year
  Sex: Female

DRUGS (3)
  1. EFAVIRENZ [Suspect]
     Indication: HIV INFECTION
  2. TENOFOVIR [Suspect]
     Indication: HIV INFECTION
  3. EMTRICITABINE [Suspect]
     Indication: HIV INFECTION

REACTIONS (3)
  - IMMUNE RECONSTITUTION SYNDROME [None]
  - ANGIOCENTRIC LYMPHOMA [None]
  - EPSTEIN-BARR VIRUS INFECTION [None]
